FAERS Safety Report 6308016-5 (Version None)
Quarter: 2009Q3

REPORT INFORMATION
  Report Type: 
  Country: None (occurrence: None)
  Receive Date: 20090813
  Receipt Date: 20090810
  Transmission Date: 20100115
  Serious: Yes (Death, Hospitalization)
  Sender: FDA-Public Use
  Company Number: A0772551A

PATIENT
  Age: 74 Year
  Sex: Male
  Weight: 134.5 kg

DRUGS (20)
  1. PROMACTA [Suspect]
     Dosage: 50MG PER DAY
     Route: 048
     Dates: start: 20090225, end: 20090401
  2. VALTREX [Suspect]
     Dosage: 1G TWICE PER DAY
     Route: 048
     Dates: start: 20090303
  3. BUMETANIDE [Concomitant]
  4. CARVEDILOL [Concomitant]
  5. FLOMAX [Concomitant]
  6. HUMALOG [Concomitant]
  7. KLOR-CON [Concomitant]
  8. LANTUS [Concomitant]
  9. LISINOPRIL [Concomitant]
  10. NIASPAN [Concomitant]
  11. NITROGLYCERIN [Concomitant]
  12. OMEPRAZOLE [Concomitant]
  13. OXYCODONE [Concomitant]
  14. PREDNISONE [Concomitant]
  15. VYTORIN [Concomitant]
  16. PROMETHAZINE [Concomitant]
  17. ZOLPIDEM TARTRATE [Concomitant]
  18. CALAMINE LOTION [Concomitant]
  19. IMMUNE GLOBULIN INTRAVENOUS (HUMAN) [Concomitant]
  20. CORTICOSTEROIDS [Concomitant]

REACTIONS (10)
  - BLISTER [None]
  - DRUG INEFFECTIVE [None]
  - HAEMORRHOIDAL HAEMORRHAGE [None]
  - HERPES ZOSTER [None]
  - IMMUNE SYSTEM DISORDER [None]
  - INFECTION [None]
  - MUSCULOSKELETAL PAIN [None]
  - RASH [None]
  - RASH PRURITIC [None]
  - RASH VESICULAR [None]
